FAERS Safety Report 4959548-3 (Version None)
Quarter: 2006Q1

REPORT INFORMATION
  Report Type: 
  Country: None (occurrence: None)
  Receive Date: 20060331
  Receipt Date: 20060322
  Transmission Date: 20060701
  Serious: Yes (Other)
  Sender: FDA-Public Use
  Company Number: JP-JPN-A200601000

PATIENT
  Age: 60 Year
  Sex: Male

DRUGS (2)
  1. ACYCLOVIR [Suspect]
     Indication: HERPES ZOSTER
     Dosage: 800MG PER DAY
     Route: 048
     Dates: start: 20031112, end: 20031114
  2. UNSPECIFIED DRUG [Concomitant]
     Indication: HERPES ZOSTER
     Route: 061
     Dates: start: 20031112, end: 20031114

REACTIONS (3)
  - DISORIENTATION [None]
  - SPEECH DISORDER [None]
  - TOXIC INDUCED ENCEPHALOPATHY [None]
